FAERS Safety Report 18235582 (Version 3)
Quarter: 2020Q4

REPORT INFORMATION
  Report Type: Spontaneous
  Country: RS (occurrence: RS)
  Receive Date: 20200905
  Receipt Date: 20201207
  Transmission Date: 20210113
  Serious: Yes (Other)
  Sender: FDA-Public Use
  Company Number: RS-AMGEN-SRBSP2020140883

PATIENT
  Age: 58 Year
  Sex: Female

DRUGS (9)
  1. PROLIA [Suspect]
     Active Substance: DENOSUMAB
     Indication: OSTEOPOROSIS
     Dosage: 60 MILLIGRAM, Q6MO
     Route: 058
     Dates: start: 20200127
  2. NIRYPAN [Concomitant]
     Indication: PYREXIA
  3. IMURAN [Concomitant]
     Active Substance: AZATHIOPRINE
     Indication: DERMATOMYOSITIS
     Dosage: 50 MILLIGRAM, QD
     Dates: start: 2013
  4. PARACETAMOL [Concomitant]
     Active Substance: ACETAMINOPHEN
     Dosage: 500 MILLIGRAM, QD
     Route: 065
  5. NIRYPAN [Concomitant]
     Indication: DERMATOMYOSITIS
     Dosage: 8 MILLIGRAM, QD
     Dates: start: 2013
  6. FAMOTIDIN [Concomitant]
     Active Substance: FAMOTIDINE
     Dosage: UNK, QD,1 X 1
     Route: 065
  7. NIRYPAN [Concomitant]
     Indication: MYALGIA
  8. NIRYPAN [Concomitant]
     Indication: ARTHRALGIA
  9. ALVODRONIC [Concomitant]
     Dosage: UNK
     Route: 065
     Dates: start: 2016

REACTIONS (7)
  - Pain in extremity [Unknown]
  - Myalgia [Recovered/Resolved]
  - Pyrexia [Recovered/Resolved]
  - Arthralgia [Recovered/Resolved]
  - Cataract operation [Not Recovered/Not Resolved]
  - Urinary tract infection bacterial [Recovered/Resolved]
  - Escherichia urinary tract infection [Recovered/Resolved]

NARRATIVE: CASE EVENT DATE: 202002
